FAERS Safety Report 6267092-9 (Version None)
Quarter: 2009Q3

REPORT INFORMATION
  Report Type: 
  Country: None (occurrence: None)
  Receive Date: 20090714
  Receipt Date: 20090703
  Transmission Date: 20100115
  Serious: Yes (Other)
  Sender: FDA-Public Use
  Company Number: FR-BRISTOL-MYERS SQUIBB COMPANY-14698989

PATIENT
  Age: 46 Year
  Sex: Male

DRUGS (9)
  1. GLUCOVANCE [Suspect]
     Indication: DIABETES MELLITUS INADEQUATE CONTROL
     Dosage: 500MG COATED TABS
     Route: 048
     Dates: start: 20090610, end: 20090615
  2. XENETIX [Suspect]
     Indication: ABDOMINAL EXPLORATION
     Dosage: 1 INTAKE, 350MG,INJECTION
     Route: 042
     Dates: start: 20090610, end: 20090610
  3. GLIBENCLAMIDE [Suspect]
     Indication: DIABETES MELLITUS INADEQUATE CONTROL
     Dosage: 5MG,TABLET
     Route: 048
     Dates: start: 20090608, end: 20090609
  4. SERESTA [Concomitant]
  5. LEPONEX [Concomitant]
  6. DIVARIUS [Concomitant]
  7. PAROXETINE HCL [Concomitant]
     Indication: DEPRESSION
  8. LANTUS [Concomitant]
     Indication: DIABETES MELLITUS
  9. NOVORAPID [Concomitant]
     Indication: DIABETES MELLITUS
     Dates: end: 20090608

REACTIONS (2)
  - PRURITUS [None]
  - RASH [None]
